FAERS Safety Report 8456027 (Version 8)
Quarter: 2015Q1

REPORT INFORMATION
  Report Type: Report from Study
  Country: PL (occurrence: PL)
  Receive Date: 20120313
  Receipt Date: 20150213
  Transmission Date: 20150721
  Serious: Yes (Other)
  Sender: FDA-Public Use
  Company Number: PL-ROCHE-1036414

PATIENT
  Age: 64 Year
  Sex: Male
  Weight: 78.7 kg

DRUGS (8)
  1. ACCUPRO [Concomitant]
     Active Substance: QUINAPRIL HYDROCHLORIDE
     Route: 065
     Dates: start: 20120218
  2. HYDROCORTISONUM [Concomitant]
     Route: 065
     Dates: start: 20120131
  3. NEBILENIN [Concomitant]
     Route: 065
     Dates: start: 20120218
  4. VEMURAFENIB [Suspect]
     Active Substance: VEMURAFENIB
     Indication: MALIGNANT MELANOMA
     Dosage: DATE OF MOST RECENT DOSE: 30/JAN/2012
     Route: 048
     Dates: start: 20120103
  5. CAPTOPRIL. [Concomitant]
     Active Substance: CAPTOPRIL
     Route: 065
     Dates: start: 200710
  6. AMLOPIN [Concomitant]
     Active Substance: AMLODIPINE BESYLATE
     Route: 065
     Dates: start: 201109, end: 20120218
  7. PRENESSA [Concomitant]
     Active Substance: PERINDOPRIL
     Route: 065
     Dates: start: 201109, end: 20120218
  8. DICLAC [Concomitant]
     Active Substance: DICLOFENAC POTASSIUM
     Route: 065
     Dates: start: 20120131

REACTIONS (1)
  - Acanthosis [Recovered/Resolved]

NARRATIVE: CASE EVENT DATE: 20120131
